FAERS Safety Report 12452824 (Version 1)
Quarter: 2016Q2

REPORT INFORMATION
  Report Type: Spontaneous
  Country: FR (occurrence: FR)
  Receive Date: 20160609
  Receipt Date: 20160609
  Transmission Date: 20160815
  Serious: Yes (Hospitalization)
  Sender: FDA-Public Use
  Company Number: FR-IGI LABORATORIES, INC.-1053611

PATIENT
  Age: 63 Year
  Sex: Female

DRUGS (8)
  1. FORTAZ [Suspect]
     Active Substance: CEFTAZIDIME SODIUM
     Indication: ANTIBIOTIC PROPHYLAXIS
     Route: 042
     Dates: start: 20160325, end: 20160429
  2. FLUDARABINE [Suspect]
     Active Substance: FLUDARABINE PHOSPHATE
     Route: 042
     Dates: start: 20160317, end: 20160320
  3. ZOVIRAX [Suspect]
     Active Substance: ACYCLOVIR
     Route: 042
     Dates: start: 20160328, end: 20160430
  4. BUSILVEX [Suspect]
     Active Substance: BUSULFAN
     Route: 042
     Dates: start: 20160320, end: 20160321
  5. ENDOXAN [Suspect]
     Active Substance: CYCLOPHOSPHAMIDE
     Route: 042
     Dates: start: 20160329, end: 20160329
  6. TEPADINA [Suspect]
     Active Substance: THIOTEPA
     Route: 042
     Dates: start: 20160318, end: 20160318
  7. ENDOXAN [Suspect]
     Active Substance: CYCLOPHOSPHAMIDE
     Route: 042
     Dates: start: 20160327, end: 20160327
  8. CELLCEPT [Suspect]
     Active Substance: MYCOPHENOLATE MOFETIL\MYCOPHENOLATE MOFETIL HYDROCHLORIDE
     Route: 042
     Dates: start: 20160330, end: 20160420

REACTIONS (2)
  - Nervous system disorder [Not Recovered/Not Resolved]
  - Encephalopathy [Not Recovered/Not Resolved]

NARRATIVE: CASE EVENT DATE: 20160406
